FAERS Safety Report 7769739-4 (Version None)
Quarter: 2011Q3

REPORT INFORMATION
  Report Type: 
  Country: None (occurrence: None)
  Receive Date: 20110922
  Receipt Date: 20100806
  Transmission Date: 20111222
  Serious: No
  Sender: FDA-Public Use
  Company Number: US-ASTRAZENECA-2010SE37007

PATIENT
  Age: 42 Year
  Sex: Female
  Weight: 72.6 kg

DRUGS (10)
  1. SEROQUEL [Suspect]
     Indication: SLEEP DISORDER
     Route: 048
     Dates: start: 20090101
  2. SEROQUEL [Suspect]
     Route: 048
     Dates: start: 20090101
  3. SEROQUEL [Suspect]
     Indication: BIPOLAR DISORDER
     Route: 048
     Dates: start: 20090101
  4. SEROQUEL [Suspect]
     Indication: ANXIETY
     Route: 048
     Dates: start: 20090101
  5. SEROQUEL [Suspect]
     Route: 048
     Dates: start: 20090101
  6. SEROQUEL [Suspect]
     Indication: DEPRESSION
     Route: 048
     Dates: start: 20090101
  7. PRILOSEC [Concomitant]
     Route: 048
  8. SEROQUEL [Suspect]
     Route: 048
     Dates: start: 20090101
  9. SEROQUEL [Suspect]
     Route: 048
     Dates: start: 20090101
  10. VITAMIN TAB [Concomitant]
     Route: 048

REACTIONS (3)
  - SOMNOLENCE [None]
  - DRUG DOSE OMISSION [None]
  - FATIGUE [None]
